FAERS Safety Report 7054838-5 (Version None)
Quarter: 2010Q4

REPORT INFORMATION
  Report Type: 
  Country: None (occurrence: None)
  Receive Date: 20101021
  Receipt Date: 20101012
  Transmission Date: 20110411
  Serious: Yes (Hospitalization)
  Sender: FDA-Public Use
  Company Number: 2006BI000257

PATIENT
  Age: 38 Year
  Sex: Female
  Weight: 88 kg

DRUGS (8)
  1. AVONEX [Suspect]
     Indication: MULTIPLE SCLEROSIS
     Route: 030
     Dates: start: 20000101, end: 20030101
  2. AVONEX [Suspect]
     Route: 030
     Dates: start: 20030101, end: 20051201
  3. AVONEX [Suspect]
     Route: 030
     Dates: start: 20051223
  4. XANAX [Concomitant]
     Indication: DEPRESSION
     Dates: start: 19930101
  5. ACIPHEX [Concomitant]
     Indication: GASTRIC DISORDER
  6. PAXIL [Concomitant]
     Indication: PANIC ATTACK
  7. ALLEGRA D 24 HOUR [Concomitant]
     Indication: SINUS DISORDER
  8. MECLIZINE [Concomitant]
     Indication: DIZZINESS

REACTIONS (5)
  - FATIGUE [None]
  - GAIT DISTURBANCE [None]
  - LOSS OF CONTROL OF LEGS [None]
  - MULTIPLE SCLEROSIS RELAPSE [None]
  - OSTEONECROSIS [None]
